FAERS Safety Report 7855799-9 (Version None)
Quarter: 2011Q4

REPORT INFORMATION
  Report Type: 
  Country: None (occurrence: None)
  Receive Date: 20111026
  Receipt Date: 20111018
  Transmission Date: 20120403
  Serious: Yes (Other)
  Sender: FDA-Public Use
  Company Number: US-RB-032499-11

PATIENT
  Age: 58 Year
  Sex: Male

DRUGS (6)
  1. SUBOXONE [Suspect]
     Indication: DRUG DEPENDENCE
     Route: 060
     Dates: start: 20100101, end: 20110701
  2. TRAZODONE HCL [Concomitant]
     Indication: SLEEP DISORDER
  3. CELEXA [Concomitant]
     Indication: DEPRESSION
     Dosage: UNKNOWN
     Route: 065
  4. ADDERALL 5 [Concomitant]
  5. SUBOXONE [Suspect]
     Indication: DRUG DEPENDENCE
     Route: 060
     Dates: start: 20100101, end: 20100101
  6. NEURONTON [Concomitant]
     Indication: PAIN
     Dosage: UNKNOWN DOSE
     Route: 065

REACTIONS (7)
  - CARDIAC FAILURE CONGESTIVE [None]
  - ANALGESIC THERAPY [None]
  - WRONG TECHNIQUE IN DRUG USAGE PROCESS [None]
  - OEDEMA PERIPHERAL [None]
  - THERAPEUTIC RESPONSE UNEXPECTED [None]
  - DYSPNOEA [None]
  - EUPHORIC MOOD [None]
